FAERS Safety Report 17527234 (Version 1)
Quarter: 2020Q1

REPORT INFORMATION
  Report Type: Spontaneous
  Country: US (occurrence: US)
  Receive Date: 20200311
  Receipt Date: 20200311
  Transmission Date: 20200409
  Serious: No
  Sender: FDA-Public Use
  Company Number: US-PFIZER INC-2020104413

PATIENT

DRUGS (2)
  1. ADVIL [Suspect]
     Active Substance: IBUPROFEN
     Indication: PAIN
     Dosage: UNK, 2X/DAY
  2. ADVIL [Suspect]
     Active Substance: IBUPROFEN
     Dosage: UNK, 1X/DAY

REACTIONS (1)
  - Gastrooesophageal reflux disease [Unknown]
